FAERS Safety Report 7216128-7 (Version None)
Quarter: 2011Q1

REPORT INFORMATION
  Report Type: 
  Country: None (occurrence: None)
  Receive Date: 20110107
  Receipt Date: 20110105
  Transmission Date: 20110831
  Serious: Yes (Life-Threatening, Other)
  Sender: FDA-Public Use
  Company Number: US-PERRIGO-10US014081

PATIENT
  Sex: Male
  Weight: 78.005 kg

DRUGS (2)
  1. NICOTINE [Suspect]
     Indication: SMOKING CESSATION THERAPY
     Dosage: 4 MG, SINGLE
     Route: 002
     Dates: start: 20100909, end: 20100909
  2. VITAMIN D [Concomitant]
     Indication: PRODUCT USED FOR UNKNOWN INDICATION
     Dosage: 1000 MG, QD
     Route: 048
     Dates: start: 20070101

REACTIONS (8)
  - FALL [None]
  - DRUG LEVEL INCREASED [None]
  - BLOOD PRESSURE DECREASED [None]
  - IMPAIRED DRIVING ABILITY [None]
  - DIZZINESS [None]
  - APHASIA [None]
  - EYE MOVEMENT DISORDER [None]
  - FOAMING AT MOUTH [None]
